FAERS Safety Report 20442395 (Version 1)
Quarter: 2022Q1

REPORT INFORMATION
  Report Type: Spontaneous
  Country: US (occurrence: US)
  Receive Date: 20220208
  Receipt Date: 20220208
  Transmission Date: 20220423
  Serious: No
  Sender: FDA-Public Use
  Company Number: US-ALLERGAN-2126943US

PATIENT
  Age: 17 Year
  Sex: Male

DRUGS (2)
  1. VIIBRYD [Suspect]
     Active Substance: VILAZODONE HYDROCHLORIDE
     Indication: Product used for unknown indication
     Dosage: 40 MG
     Dates: start: 202010
  2. REXULTI [Concomitant]
     Active Substance: BREXPIPRAZOLE
     Dosage: 0.5 MG

REACTIONS (4)
  - Nausea [Recovering/Resolving]
  - Fatigue [Unknown]
  - Dizziness [Recovering/Resolving]
  - Vomiting [Recovering/Resolving]

NARRATIVE: CASE EVENT DATE: 20210726
